FAERS Safety Report 9524386 (Version 1)
Quarter: 2013Q1

REPORT INFORMATION
  Report Type: Spontaneous
  Country: US (occurrence: None)
  Receive Date: 20130305
  Receipt Date: 20130305
  Transmission Date: 20140127
  Serious: Yes (Other)
  Sender: FDA-Public Use
  Company Number: 163-21880-12033457

PATIENT
  Age: 77 Year
  Sex: Female

DRUGS (8)
  1. REVLIMID [Suspect]
     Indication: PLASMA CELL MYELOMA
     Dosage: 25 MG, 1 IN 1 D, PO
     Route: 048
     Dates: start: 201004
  2. ZOMETA (ZOLEDRONIC ACID) (UNKNOWN)? [Concomitant]
  3. LISINOPRIL (LISINOPRIL) (UNKNOWN) [Concomitant]
  4. PROTONIX (UNKNOWN) [Concomitant]
  5. DECADRON [Concomitant]
  6. MORPHINE (MORPHINE)  (UNKNOWN) [Concomitant]
  7. FOLIC ACID (FOLIC ACID) (UNKNOWN) [Concomitant]
  8. VITAMINS (VITAMINS) (UNKNOWN) [Concomitant]

REACTIONS (4)
  - Fatigue [None]
  - Listless [None]
  - Plasma cell myeloma [None]
  - Chest pain [None]
